FAERS Safety Report 11220887 (Version 1)
Quarter: 2015Q2

REPORT INFORMATION
  Report Type: Spontaneous
  Country: GB (occurrence: GB)
  Receive Date: 20150626
  Receipt Date: 20150626
  Transmission Date: 20150821
  Serious: Yes (Other)
  Sender: FDA-Public Use
  Company Number: GB-TEVA-572241ACC

PATIENT
  Age: 57 Year
  Sex: Female
  Weight: 41.27 kg

DRUGS (3)
  1. TRIMETHOPRIM. [Suspect]
     Active Substance: TRIMETHOPRIM
     Indication: CYSTITIS
     Dosage: 400 MILLIGRAM DAILY;
     Route: 048
     Dates: start: 20150508
  2. TETRABENAZINE [Concomitant]
     Active Substance: TETRABENAZINE
  3. BACLOFEN. [Concomitant]
     Active Substance: BACLOFEN

REACTIONS (1)
  - Dystonia [Recovered/Resolved]

NARRATIVE: CASE EVENT DATE: 20150509
